FAERS Safety Report 6003661-9 (Version None)
Quarter: 2008Q4

REPORT INFORMATION
  Report Type: 
  Country: None (occurrence: None)
  Receive Date: 20081216
  Receipt Date: 20080612
  Transmission Date: 20090506
  Serious: No
  Sender: FDA-Public Use
  Company Number: US-AMGEN-KDL286777

PATIENT
  Sex: Male

DRUGS (10)
  1. ARANESP [Suspect]
     Indication: ANAEMIA
     Route: 058
     Dates: start: 20080529
  2. NEULASTA [Suspect]
     Indication: NEUTROPENIA
     Route: 058
     Dates: start: 20080529
  3. SYNTHROID [Concomitant]
  4. SIMVASTATIN [Concomitant]
  5. XALATAN [Concomitant]
  6. ACTOS [Concomitant]
  7. PRANDIN [Concomitant]
  8. LANTUS [Concomitant]
  9. METFORMIN HCL [Concomitant]
  10. MULTI-VITAMINS [Concomitant]

REACTIONS (1)
  - HAEMOGLOBIN DECREASED [None]
